FAERS Safety Report 13424363 (Version 3)
Quarter: 2017Q2

REPORT INFORMATION
  Report Type: Spontaneous
  Country: IT (occurrence: IT)
  Receive Date: 20170410
  Receipt Date: 20170425
  Transmission Date: 20170830
  Serious: Yes (Other)
  Sender: FDA-Public Use
  Company Number: PHHY2017IT049668

PATIENT
  Age: 77 Year
  Sex: Female

DRUGS (3)
  1. ALLOPURINOL. [Suspect]
     Active Substance: ALLOPURINOL
     Indication: MEDICATION ERROR
     Dosage: 100 MG, ONCE/SINGLE
     Route: 048
  2. PRILACE (PIRETANIDE\RAMIPRIL) [Suspect]
     Active Substance: PIRETANIDE\RAMIPRIL
     Indication: MEDICATION ERROR
     Dosage: 5 MG, ONCE/SINGLE
     Route: 048
  3. AMLODIPINE BESYLATE. [Suspect]
     Active Substance: AMLODIPINE BESYLATE
     Indication: MEDICATION ERROR
     Dosage: 5 MG, ONCE/SINGLE
     Route: 048

REACTIONS (4)
  - Medication error [Unknown]
  - Anxiety [Unknown]
  - Tremor [Unknown]
  - Asthenia [Unknown]

NARRATIVE: CASE EVENT DATE: 20170107
